FAERS Safety Report 8508938-0 (Version None)
Quarter: 2012Q3

REPORT INFORMATION
  Report Type: 
  Country: None (occurrence: None)
  Receive Date: 20120713
  Receipt Date: 20120705
  Transmission Date: 20120928
  Serious: Yes (Other)
  Sender: FDA-Public Use
  Company Number: CZ-PFIZER INC-2012166521

PATIENT
  Age: 7 Year
  Sex: Male

DRUGS (2)
  1. ETOPOSIDE [Suspect]
     Dosage: UNK
  2. DEXAMETHASONE SODIUM PHOSPHATE [Suspect]
     Dosage: UNK

REACTIONS (2)
  - HYPERTROPHIC CARDIOMYOPATHY [None]
  - VENTRICULAR ARRHYTHMIA [None]
